FAERS Safety Report 7192131-0 (Version None)
Quarter: 2010Q4

REPORT INFORMATION
  Report Type: 
  Country: None (occurrence: None)
  Receive Date: 20101223
  Receipt Date: 20100625
  Transmission Date: 20110411
  Serious: No
  Sender: FDA-Public Use
  Company Number: US-TYCO HEALTHCARE/MALLINCKRODT-T201001535

PATIENT
  Sex: Female

DRUGS (6)
  1. HYDROMORPHONE HCL [Suspect]
     Indication: PAIN
     Dosage: 8 MG, QID
     Dates: start: 20080101
  2. TOPAMAX [Concomitant]
     Indication: MIGRAINE
     Dosage: 50 UNK, QD
     Route: 048
  3. METFORMIN HCL [Concomitant]
     Indication: DIABETES MELLITUS
     Dosage: 500 UNK, BID
     Route: 048
  4. GABAPENTIN [Concomitant]
     Indication: NEUROPATHY PERIPHERAL
     Dosage: 150 UNK, BID
     Route: 048
  5. HORMONES NOS [Concomitant]
     Indication: HORMONE REPLACEMENT THERAPY
     Dosage: 5 MG, QD
     Route: 048
  6. OTHER ANTIHYPERTENSIVES [Concomitant]
     Indication: HYPERTENSION
     Dosage: 1.25 UNK, QD
     Route: 048

REACTIONS (1)
  - FEELING ABNORMAL [None]
